FAERS Safety Report 5787676-1 (Version None)
Quarter: 2008Q2

REPORT INFORMATION
  Report Type: 
  Country: None (occurrence: None)
  Receive Date: 20080625
  Receipt Date: 20080103
  Transmission Date: 20081010
  Serious: No
  Sender: FDA-Public Use
  Company Number: US-ASTRAZENECA-2007UW25167

PATIENT
  Age: 79 Year
  Sex: Female
  Weight: 68 kg

DRUGS (9)
  1. PULMICORT RESPULES [Suspect]
     Indication: ASTHMA
     Dosage: 0.5 MG/ML
     Route: 055
     Dates: start: 20070801
  2. PULMICORT FLEXHALER [Suspect]
     Indication: ASTHMA
     Dosage: 180 MCG
     Route: 055
     Dates: start: 20071027
  3. FOSAMAX [Concomitant]
  4. PREVACID [Concomitant]
  5. FISH OIL [Concomitant]
  6. OMEGA 3 [Concomitant]
  7. CENTRUM SILVER [Concomitant]
  8. WARFARIN SODIUM [Concomitant]
  9. MAGNESIUM [Concomitant]

REACTIONS (3)
  - HEART RATE INCREASED [None]
  - HYPOTENSION [None]
  - PALPITATIONS [None]
